FAERS Safety Report 9475774 (Version 1)
Quarter: 2013Q3

REPORT INFORMATION
  Report Type: Spontaneous
  Country: US (occurrence: None)
  Receive Date: 20130822
  Receipt Date: 20130822
  Transmission Date: 20140515
  Serious: No
  Sender: FDA-Public Use
  Company Number: None

PATIENT
  Sex: Male
  Weight: 61.2 kg

DRUGS (1)
  1. CETUXIMAB (ERBITUX) (714692) [Suspect]

REACTIONS (5)
  - Mental status changes [None]
  - Nephrolithiasis [None]
  - Metastases to central nervous system [None]
  - Cardio-respiratory arrest [None]
  - Hydronephrosis [None]
